FAERS Safety Report 8659008 (Version 2)
Quarter: 2013Q2

REPORT INFORMATION
  Report Type: Spontaneous
  Country: US (occurrence: None)
  Receive Date: 20120402
  Receipt Date: 20120824
  Transmission Date: 20140414
  Serious: Yes (Hospitalization)
  Sender: FDA-Public Use
  Company Number: A-NJ2011-50271

PATIENT
  Age: 73 Year
  Sex: Female

DRUGS (14)
  1. EPOPROSTENOL SODIUM [Suspect]
     Indication: PULMONARY ARTERIAL HYPERTENSION
     Dosage: 16.5NG/KG, PER MIN, IV DRIP
     Route: 041
     Dates: start: 20100929
  2. ADCIRCA [Concomitant]
  3. COUMADIN [Concomitant]
  4. OXYGEN (OXYGEN) [Concomitant]
  5. CALCIUM CHANNEL BLOCKERS [Concomitant]
  6. ANTIINFLAMMATORY AGENTS, NON-STEROIDS [Concomitant]
  7. DIGOXIN (DIGOXIN) [Concomitant]
  8. ANTIDEPRESSANTS [Concomitant]
  9. ANGIOTENSIN II ANTAGONISTS [Concomitant]
  10. POTASSIUM (POTASSIUM) [Concomitant]
  11. ALPRAZOLAM (ALPRAZOLAM) [Concomitant]
  12. HYDRALAZINE (HYDRALAZINE) [Concomitant]
  13. DOCUSATE (DOCUSATE) [Concomitant]
  14. DARVOCET (DEXTROPROPOXYPHENE HYDROCHLORIDE, PARACETAMOL) [Concomitant]

REACTIONS (10)
  - STAPHYLOCOCCAL INFECTION [None]
  - DEVICE RELATED INFECTION [None]
  - Catheter site swelling [None]
  - Catheter site erythema [None]
  - Catheter site pain [None]
  - Central venous catheter removal [None]
  - Dyspnoea [None]
  - Fatigue [None]
  - Nausea [None]
  - Catheter site pruritus [None]
